FAERS Safety Report 5943943-X (Version None)
Quarter: 2008Q4

REPORT INFORMATION
  Report Type: 
  Country: None (occurrence: None)
  Receive Date: 20081104
  Receipt Date: 20081027
  Transmission Date: 20090506
  Serious: Yes (Hospitalization)
  Sender: FDA-Public Use
  Company Number: US024933

PATIENT
  Age: 71 Year
  Sex: Male
  Weight: 92.5338 kg

DRUGS (15)
  1. BENDAMUSTINE HCL [Suspect]
     Indication: MULTIPLE MYELOMA
     Dosage: 75 MG/M2 DAYS 1 AND 2 OF 28-DAY CYCLE INTRAVENOUS
     Route: 042
     Dates: start: 20080910, end: 20080911
  2. BENDAMUSTINE HCL [Suspect]
     Indication: MULTIPLE MYELOMA
     Dosage: 75 MG/M2 DAYS 1 AND 2 OF 28-DAY CYCLE INTRAVENOUS
     Route: 042
     Dates: start: 20080908, end: 20080909
  3. REVLIMID [Suspect]
     Indication: MULTIPLE MYELOMA
     Dosage: 10 MG DAILY X 21 DAYS 28-DAY CYCLE
     Dates: start: 20080910, end: 20080930
  4. REVLIMID [Suspect]
     Indication: MULTIPLE MYELOMA
     Dosage: 10 MG DAILY X 21 DAYS 28-DAY CYCLE
     Dates: start: 20081008, end: 20081022
  5. COUMADIN [Concomitant]
  6. PROCARDIA [Concomitant]
  7. LEXAPRO [Concomitant]
  8. PRANDIN [Concomitant]
  9. XANAX [Concomitant]
  10. PROTONIX [Concomitant]
  11. DURAGESIC-100 [Concomitant]
  12. TRICOR [Concomitant]
  13. FLOMAX [Concomitant]
  14. PERCOCET [Concomitant]
  15. DEXAMETHASONE 0.5MG TAB [Concomitant]

REACTIONS (5)
  - ELECTROCARDIOGRAM QT PROLONGED [None]
  - FATIGUE [None]
  - HEART RATE IRREGULAR [None]
  - PALLOR [None]
  - VENTRICULAR ARRHYTHMIA [None]
